FAERS Safety Report 14330152 (Version 4)
Quarter: 2018Q1

REPORT INFORMATION
  Report Type: Report from Study
  Country: US (occurrence: US)
  Receive Date: 20171227
  Receipt Date: 20180315
  Transmission Date: 20180509
  Serious: Yes (Hospitalization, Other)
  Sender: FDA-Public Use
  Company Number: US-GILEAD-2017-0312246

PATIENT
  Age: 55 Year
  Sex: Male

DRUGS (14)
  1. AMBRISENTAN [Suspect]
     Active Substance: AMBRISENTAN
     Indication: PULMONARY HYPERTENSION
     Dosage: 10 MG, QD
     Route: 065
     Dates: start: 20160630
  2. ASPIRIN. [Concomitant]
     Active Substance: ASPIRIN
  3. SERTRALINE [Concomitant]
     Active Substance: SERTRALINE HYDROCHLORIDE
  4. MULTI VITAMIN                      /08408501/ [Concomitant]
     Active Substance: VITAMINS
  5. LEVOTHYROXIN [Concomitant]
     Active Substance: LEVOTHYROXINE
  6. VENTOLIN HFA [Concomitant]
     Active Substance: ALBUTEROL SULFATE
  7. GABAPENTIN. [Concomitant]
     Active Substance: GABAPENTIN
  8. METOPROL XL [Concomitant]
  9. AMITRIPTYLIN [Concomitant]
     Active Substance: AMITRIPTYLINE
  10. JANUVIA [Concomitant]
     Active Substance: SITAGLIPTIN PHOSPHATE
  11. LIPITOR [Concomitant]
     Active Substance: ATORVASTATIN CALCIUM
  12. NOVOLOG [Concomitant]
     Active Substance: INSULIN ASPART
  13. SILDENAFIL. [Concomitant]
     Active Substance: SILDENAFIL
  14. SPIRONOLACTONE. [Concomitant]
     Active Substance: SPIRONOLACTONE

REACTIONS (5)
  - Tremor [Not Recovered/Not Resolved]
  - Pneumonia [Recovering/Resolving]
  - Dyspnoea [Not Recovered/Not Resolved]
  - Blood glucose increased [Not Recovered/Not Resolved]
  - Pulmonary hypertension [Not Recovered/Not Resolved]

NARRATIVE: CASE EVENT DATE: 201802
